FAERS Safety Report 9696084 (Version 3)
Quarter: 2014Q1

REPORT INFORMATION
  Report Type: Spontaneous
  Country: IT (occurrence: IT)
  Receive Date: 20131119
  Receipt Date: 20140103
  Transmission Date: 20141002
  Serious: Yes (Hospitalization)
  Sender: FDA-Public Use
  Company Number: IT-B.I. PHARMACEUTICALS,INC./RIDGEFIELD-2013-BI-36865IT

PATIENT
  Age: 74 Year
  Sex: Male

DRUGS (8)
  1. TAMSULOSIN HYDROCHLORIDE [Suspect]
     Dates: start: 20120908, end: 20130907
  2. CATAPRESAN TTS [Suspect]
     Dosage: 0.7143 MG
     Route: 062
     Dates: start: 20120908, end: 20130907
  3. FUROSEMIDE [Suspect]
     Route: 062
     Dates: start: 20120708, end: 20130907
  4. VASCOMAN [Suspect]
     Dates: start: 20120908, end: 20130907
  5. CALCITRIOL [Concomitant]
  6. ALLOPURINOL [Concomitant]
  7. ASPIRIN [Concomitant]
  8. ARANESP [Concomitant]
     Dosage: ROUTE:SUBCUTANEOUS OR INTRAVENOUS

REACTIONS (2)
  - Orthostatic hypotension [Not Recovered/Not Resolved]
  - Syncope [Not Recovered/Not Resolved]
